FAERS Safety Report 18098293 (Version 1)
Quarter: 2020Q3

REPORT INFORMATION
  Report Type: Spontaneous
  Country: US (occurrence: US)
  Receive Date: 20200730
  Receipt Date: 20200730
  Transmission Date: 20201103
  Serious: No
  Sender: FDA-Public Use
  Company Number: None

PATIENT
  Age: 69 Year
  Sex: Female

DRUGS (1)
  1. PROLIA [Suspect]
     Active Substance: DENOSUMAB
     Indication: OSTEOPOROSIS
     Dosage: ?          OTHER FREQUENCY:EVERY6MONTHS;?
     Route: 058
     Dates: start: 202006

REACTIONS (5)
  - Blister [None]
  - Scab [None]
  - Rash [None]
  - Pain [None]
  - Heart rate irregular [None]

NARRATIVE: CASE EVENT DATE: 20200605
